FAERS Safety Report 12287878 (Version 1)
Quarter: 2016Q2

REPORT INFORMATION
  Report Type: Spontaneous
  Country: US (occurrence: US)
  Receive Date: 20160420
  Receipt Date: 20160420
  Transmission Date: 20160815
  Serious: Yes (Death, Other)
  Sender: FDA-Public Use
  Company Number: US-TAKEDA-TPA2011A07790

PATIENT

DRUGS (11)
  1. PRANDIN                            /01393601/ [Concomitant]
     Dates: start: 2001, end: 2002
  2. LANTUS [Concomitant]
     Active Substance: INSULIN GLARGINE
     Dates: start: 2011, end: 2012
  3. DIABETA [Concomitant]
     Active Substance: GLYBURIDE
     Dates: start: 2003, end: 2012
  4. GLUCOTROL [Concomitant]
     Active Substance: GLIPIZIDE
     Dates: start: 1992, end: 2000
  5. ACTOS [Suspect]
     Active Substance: PIOGLITAZONE HYDROCHLORIDE
     Dosage: 15 MG, UNK
     Route: 048
     Dates: start: 20020902, end: 20030217
  6. ACTOS [Suspect]
     Active Substance: PIOGLITAZONE HYDROCHLORIDE
     Dosage: 45 MG, UNK
     Route: 048
     Dates: start: 20000424, end: 20000507
  7. METFORMIN HYDROCHLORIDE. [Concomitant]
     Active Substance: METFORMIN HYDROCHLORIDE
  8. GLUCOPHAGE [Concomitant]
     Active Substance: METFORMIN HYDROCHLORIDE
     Dates: start: 2001
  9. PRANDIN                            /01393601/ [Concomitant]
     Dates: start: 2004, end: 2004
  10. STARLIX [Concomitant]
     Active Substance: NATEGLINIDE
     Dates: start: 2004, end: 2005
  11. ACTOS [Suspect]
     Active Substance: PIOGLITAZONE HYDROCHLORIDE
     Indication: TYPE 2 DIABETES MELLITUS
     Dosage: 45 MG, UNK
     Route: 048
     Dates: start: 20030423, end: 20090428

REACTIONS (2)
  - Bladder cancer [Not Recovered/Not Resolved]
  - Death [Fatal]

NARRATIVE: CASE EVENT DATE: 200710
